FAERS Safety Report 18142497 (Version 2)
Quarter: 2020Q4

REPORT INFORMATION
  Report Type: Spontaneous
  Country: GB (occurrence: GB)
  Receive Date: 20200812
  Receipt Date: 20201007
  Transmission Date: 20210113
  Serious: No
  Sender: FDA-Public Use
  Company Number: GB-AMGEN-GBRSP2020126655

PATIENT
  Age: 59 Year
  Sex: Female

DRUGS (3)
  1. POMALIDOMIDE [Concomitant]
     Active Substance: POMALIDOMIDE
     Indication: NORMOCYTIC ANAEMIA
  2. DARBEPOETIN ALFA [Suspect]
     Active Substance: DARBEPOETIN ALFA
     Indication: NORMOCYTIC ANAEMIA
     Dosage: 200 MICROGRAM, Q2WK
     Route: 058
     Dates: start: 201408, end: 201411
  3. THALIDOMIDE [Concomitant]
     Active Substance: THALIDOMIDE
     Indication: NORMOCYTIC ANAEMIA

REACTIONS (1)
  - Off label use [Unknown]
